FAERS Safety Report 9822638 (Version 2)
Quarter: 2014Q1

REPORT INFORMATION
  Report Type: Spontaneous
  Country: None (occurrence: US)
  Receive Date: 20140116
  Receipt Date: 20140116
  Transmission Date: 20141002
  Serious: No
  Sender: FDA-Public Use
  Company Number: US-ALLERGAN-1217544US

PATIENT
  Age: 83 Year
  Sex: Male

DRUGS (6)
  1. PRED FORTE [Suspect]
     Indication: POSTOPERATIVE CARE
     Dosage: TAPERING DOSE TO RIGHT EYE
     Route: 047
     Dates: start: 20120210, end: 20120517
  2. PRED FORTE [Suspect]
     Dosage: TAPERING DOSE
     Route: 047
     Dates: start: 20101209, end: 20110119
  3. PRED FORTE [Suspect]
     Dosage: TAPERING DOSE
     Route: 047
     Dates: start: 20110209, end: 20110412
  4. FOLIC ACID [Concomitant]
     Indication: SUPPLEMENTATION THERAPY
     Dosage: UNK
     Route: 048
  5. MULTIPLE VITAMINS [Concomitant]
     Indication: SUPPLEMENTATION THERAPY
     Dosage: UNK
     Route: 048
  6. EYE DROPS NOS [Concomitant]
     Indication: GLAUCOMA
     Dosage: 1 GTT, UNK
     Route: 047
     Dates: start: 20120128

REACTIONS (4)
  - Blood test abnormal [Unknown]
  - Protein urine present [Unknown]
  - Muscular weakness [Unknown]
  - Asthenia [Unknown]
